FAERS Safety Report 23885107 (Version 1)
Quarter: 2024Q2

REPORT INFORMATION
  Report Type: Spontaneous
  Country: US (occurrence: None)
  Receive Date: 20240522
  Receipt Date: 20240522
  Transmission Date: 20240715
  Serious: Yes (Hospitalization)
  Sender: FDA-Public Use
  Company Number: None

PATIENT
  Age: 61 Year
  Sex: Male

DRUGS (11)
  1. ENVARSUS XR [Suspect]
     Active Substance: TACROLIMUS
     Indication: Renal transplant
     Dosage: FREQUENCY : DAILY;?
     Route: 048
     Dates: start: 20211027
  2. AMLOD/VALSAR [Concomitant]
  3. CALCITRIOL [Concomitant]
     Active Substance: CALCITRIOL
  4. CRANBERRY [Concomitant]
     Active Substance: CRANBERRY
  5. ELIQUIS [Concomitant]
     Active Substance: APIXABAN
  6. FISH OIL [Concomitant]
     Active Substance: FISH OIL
  7. LISINOPRIL [Concomitant]
     Active Substance: LISINOPRIL
  8. MAGNESIUM OXIDE [Concomitant]
     Active Substance: MAGNESIUM OXIDE
  9. METOPROL [Concomitant]
  10. RED YEAST [Concomitant]
     Active Substance: RED YEAST
  11. RESVERATROL POW [Concomitant]

REACTIONS (2)
  - Condition aggravated [None]
  - Emergency care [None]

NARRATIVE: CASE EVENT DATE: 20240507
